FAERS Safety Report 22070971 (Version 1)
Quarter: 2023Q1

REPORT INFORMATION
  Report Type: Spontaneous
  Country: US (occurrence: US)
  Receive Date: 20230307
  Receipt Date: 20230307
  Transmission Date: 20230418
  Serious: Yes (Hospitalization)
  Sender: FDA-Public Use
  Company Number: US-VERTEX PHARMACEUTICALS-2023-003327

PATIENT
  Age: 18 Year
  Sex: Female

DRUGS (1)
  1. TRIKAFTA [Suspect]
     Active Substance: ELEXACAFTOR\IVACAFTOR\TEZACAFTOR
     Indication: Cystic fibrosis
     Dosage: UNKNOWN DOSAGE REGIMEN
     Route: 048
     Dates: end: 2022

REACTIONS (4)
  - General physical health deterioration [Not Recovered/Not Resolved]
  - Mycobacterium test positive [Not Recovered/Not Resolved]
  - Drug abuse [Recovered/Resolved]
  - Alcohol abuse [Recovered/Resolved]

NARRATIVE: CASE EVENT DATE: 20220101
